FAERS Safety Report 8220234-8 (Version None)
Quarter: 2012Q1

REPORT INFORMATION
  Report Type: 
  Country: None (occurrence: None)
  Receive Date: 20120320
  Receipt Date: 20120307
  Transmission Date: 20120608
  Serious: Yes (Hospitalization)
  Sender: FDA-Public Use
  Company Number: US-BAYER-2012-023591

PATIENT
  Age: 46 Year
  Sex: Female

DRUGS (8)
  1. MULTI-VITAMIN [Concomitant]
     Dosage: DAILY
     Route: 048
     Dates: start: 20090422
  2. CHONDROITIN W/GLUCOSAMINE [Concomitant]
     Dosage: DAILY, UNK
     Route: 048
     Dates: start: 20090422
  3. YAZ [Suspect]
  4. FLUOXETINE [Concomitant]
  5. CHONDROITIN W/GLUCOSAMINE [Concomitant]
     Dosage: DAILY, UNK
     Route: 048
     Dates: start: 20090422
  6. CALCIUM PLUS VITAMIN D [Concomitant]
     Dosage: 500/200 INTERNATIONAL UNITS DAILY, UNK
     Route: 048
     Dates: start: 20090422
  7. ASCORBIC ACID [Concomitant]
     Dosage: DAILY, UNK
     Route: 048
     Dates: start: 20090422
  8. ASPIRIN [Concomitant]
     Dosage: 81 MG, DAILY, UNK
     Route: 048
     Dates: start: 20090422

REACTIONS (1)
  - PULMONARY EMBOLISM [None]
